FAERS Safety Report 6411575-5 (Version None)
Quarter: 2009Q4

REPORT INFORMATION
  Report Type: 
  Country: None (occurrence: None)
  Receive Date: 20091023
  Receipt Date: 20091019
  Transmission Date: 20100525
  Serious: Yes (Hospitalization)
  Sender: FDA-Public Use
  Company Number: US-AMGEN-KDL370177

PATIENT
  Sex: Female
  Weight: 84 kg

DRUGS (11)
  1. PROCRIT [Suspect]
     Indication: RENAL FAILURE CHRONIC
     Dates: start: 20090318
  2. AMIODARONE HCL [Suspect]
     Route: 048
     Dates: end: 20091015
  3. LASIX [Concomitant]
     Route: 048
  4. ALTACE [Concomitant]
     Route: 048
  5. BETAPACE [Concomitant]
     Route: 048
  6. POTASSIUM CHLORIDE [Concomitant]
     Route: 048
  7. COUMADIN [Concomitant]
     Route: 048
  8. NORVASC [Concomitant]
  9. ZOCOR [Concomitant]
     Route: 048
  10. LORTAB [Concomitant]
     Route: 048
  11. ASPIRIN [Concomitant]
     Route: 048

REACTIONS (1)
  - ANGIOEDEMA [None]
